FAERS Safety Report 6641187-X (Version None)
Quarter: 2010Q1

REPORT INFORMATION
  Report Type: 
  Country: None (occurrence: None)
  Receive Date: 20100318
  Receipt Date: 20100308
  Transmission Date: 20100710
  Serious: Yes (Other)
  Sender: FDA-Public Use
  Company Number: PHHY2009DE36030

PATIENT
  Sex: Female
  Weight: 42 kg

DRUGS (11)
  1. ZOMETA [Suspect]
     Indication: BREAST CANCER
     Dosage: EVERY 4 WEEKS
     Route: 042
     Dates: start: 20040525, end: 20080826
  2. ZALDIAR [Concomitant]
  3. MOBLOC [Concomitant]
  4. TRIAMTEREN [Concomitant]
  5. CELESTAMINE TAB [Concomitant]
  6. POLARONIL [Concomitant]
  7. OXAZEPAM [Concomitant]
  8. FASLODEX [Concomitant]
  9. TAMOXIFEN CITRATE [Concomitant]
  10. LEFAX [Concomitant]
     Dosage: UNK
  11. DIAZEPAM [Concomitant]
     Dosage: AS NEEDED

REACTIONS (5)
  - JAW DISORDER [None]
  - OSTEONECROSIS [None]
  - SURGERY [None]
  - TOOTH DISORDER [None]
  - TOOTH LOSS [None]
